FAERS Safety Report 13087015 (Version 1)
Quarter: 2017Q1

REPORT INFORMATION
  Report Type: Spontaneous
  Country: GB (occurrence: GB)
  Receive Date: 20170105
  Receipt Date: 20170105
  Transmission Date: 20170428
  Serious: Yes (Other)
  Sender: FDA-Public Use
  Company Number: GB-ASTRAZENECA-2017SE00080

PATIENT
  Age: 34 Year
  Sex: Female
  Weight: 57.1 kg

DRUGS (2)
  1. ZOLADEX [Suspect]
     Active Substance: GOSERELIN ACETATE
     Indication: OVARIAN REMNANT SYNDROME
     Route: 058
     Dates: start: 20160922
  2. OESTROGEN [Concomitant]

REACTIONS (4)
  - Panic attack [Unknown]
  - Anxiety [Not Recovered/Not Resolved]
  - Intentional self-injury [Unknown]
  - Decreased appetite [Not Recovered/Not Resolved]
